FAERS Safety Report 5532921-0 (Version None)
Quarter: 2007Q4

REPORT INFORMATION
  Report Type: 
  Country: None (occurrence: None)
  Receive Date: 20071129
  Receipt Date: 20071120
  Transmission Date: 20080405
  Serious: Yes (Hospitalization, Other)
  Sender: FDA-Public Use
  Company Number: 2007SP023437

PATIENT
  Age: 47 Year
  Sex: Male

DRUGS (2)
  1. PEG-INTRON [Suspect]
     Indication: HEPATITIS C
     Dosage: SC
     Route: 058
     Dates: start: 20070509, end: 20071017
  2. RIBAVIRIN [Suspect]
     Indication: HEPATITIS C
     Dosage: PO
     Route: 048
     Dates: start: 20070509, end: 20071017

REACTIONS (11)
  - BRONCHIAL SECRETION RETENTION [None]
  - DYSPHAGIA [None]
  - FALL [None]
  - LOSS OF CONSCIOUSNESS [None]
  - LUNG INFECTION [None]
  - MUSCULOSKELETAL STIFFNESS [None]
  - NOSOCOMIAL INFECTION [None]
  - ORAL PAIN [None]
  - PANIC REACTION [None]
  - RESPIRATORY ARREST [None]
  - STAPHYLOCOCCAL INFECTION [None]
